FAERS Safety Report 12146578 (Version 5)
Quarter: 2016Q2

REPORT INFORMATION
  Report Type: Report from Study
  Country: IL (occurrence: IL)
  Receive Date: 20160304
  Receipt Date: 20160520
  Transmission Date: 20160815
  Serious: Yes (Other)
  Sender: FDA-Public Use
  Company Number: IL-ABBVIE-16P-082-1573289-00

PATIENT
  Age: 37 Year
  Sex: Female
  Weight: 63 kg

DRUGS (2)
  1. VIEKIRAX [Suspect]
     Active Substance: OMBITASVIR\PARITAPREVIR\RITONAVIR
     Indication: HEPATITIS C
     Route: 048
     Dates: start: 20160203
  2. EXVIERA [Suspect]
     Active Substance: DASABUVIR
     Indication: HEPATITIS C
     Route: 048
     Dates: start: 20160203

REACTIONS (24)
  - Blindness [Unknown]
  - Urinary tract infection [Unknown]
  - Feeling abnormal [Recovered/Resolved]
  - Pain in extremity [Unknown]
  - Tension [Unknown]
  - Headache [Unknown]
  - Pelvic pain [Unknown]
  - Fatigue [Recovered/Resolved]
  - Weight increased [Unknown]
  - Migraine [Unknown]
  - Medication error [Unknown]
  - Uterine haemorrhage [Unknown]
  - Cyst [Unknown]
  - Nausea [Recovered/Resolved]
  - Abdominal pain lower [Not Recovered/Not Resolved]
  - Abdominal distension [Unknown]
  - Stress [Unknown]
  - Vaginal haemorrhage [Not Recovered/Not Resolved]
  - Liver function test increased [Unknown]
  - Sensory disturbance [Unknown]
  - Benign ovarian tumour [Unknown]
  - Neck pain [Unknown]
  - Disturbance in attention [Unknown]
  - Dizziness [Unknown]

NARRATIVE: CASE EVENT DATE: 20160203
